FAERS Safety Report 13302616 (Version 2)
Quarter: 2017Q2

REPORT INFORMATION
  Report Type: Report from Study
  Country: AR (occurrence: AR)
  Receive Date: 20170307
  Receipt Date: 20170405
  Transmission Date: 20170830
  Serious: Yes (Other)
  Sender: FDA-Public Use
  Company Number: AR-JNJFOC-20170305605

PATIENT
  Age: 57 Year
  Sex: Male
  Weight: 120 kg

DRUGS (4)
  1. PENICILLINE [Concomitant]
     Active Substance: PENICILLIN
     Route: 065
  2. SIMPONI [Suspect]
     Active Substance: GOLIMUMAB
     Indication: PSORIATIC ARTHROPATHY
     Route: 058
     Dates: start: 20170126
  3. SUPRALER [Concomitant]
     Route: 065
  4. MOMEPLUS [Concomitant]
     Route: 065

REACTIONS (2)
  - Dermatitis allergic [Not Recovered/Not Resolved]
  - Erysipelas [Not Recovered/Not Resolved]

NARRATIVE: CASE EVENT DATE: 201702
